FAERS Safety Report 8329648-9 (Version None)
Quarter: 2012Q2

REPORT INFORMATION
  Report Type: 
  Country: None (occurrence: None)
  Receive Date: 20120502
  Receipt Date: 20120424
  Transmission Date: 20120825
  Serious: Yes (Other)
  Sender: FDA-Public Use
  Company Number: DE-AMGEN-DEUSP2012025648

PATIENT
  Sex: Male

DRUGS (4)
  1. CINACALCET HYDROCHLORIDE [Suspect]
     Indication: HYPERPARATHYROIDISM SECONDARY
     Dosage: 90 UNK, UNK
  2. CINACALCET HYDROCHLORIDE [Suspect]
     Dosage: 120 MG, UNK
  3. CINACALCET HYDROCHLORIDE [Suspect]
     Dosage: 30 MG, UNK
  4. VITAMIN D2 + CALCIUM               /00188401/ [Concomitant]

REACTIONS (3)
  - DRUG INEFFECTIVE [None]
  - BLOOD PARATHYROID HORMONE INCREASED [None]
  - NAUSEA [None]
